FAERS Safety Report 15924344 (Version 3)
Quarter: 2019Q1

REPORT INFORMATION
  Report Type: Report from Study
  Country: US (occurrence: US)
  Receive Date: 20190205
  Receipt Date: 20190321
  Transmission Date: 20190417
  Serious: Yes (Hospitalization, Other)
  Sender: FDA-Public Use
  Company Number: US-ACTELION-A-NJ2017-148947

PATIENT
  Age: 65 Year
  Sex: Female
  Weight: 79.82 kg

DRUGS (13)
  1. SILDENAFIL CITRATE. [Concomitant]
     Active Substance: SILDENAFIL CITRATE
     Dosage: 20 MG, TID
     Dates: start: 20170320
  2. VELETRI [Suspect]
     Active Substance: EPOPROSTENOL
     Dosage: 12 NG/KG, PER MIN
     Route: 042
  3. AMLODIPINE [Concomitant]
     Active Substance: AMLODIPINE BESYLATE
  4. VELETRI [Suspect]
     Active Substance: EPOPROSTENOL
     Indication: PULMONARY ARTERIAL HYPERTENSION
     Dosage: 33.4 NG/KG, PER MIN
     Route: 042
  5. VELETRI [Suspect]
     Active Substance: EPOPROSTENOL
     Dosage: 22 NG/KG, PER MIN
     Route: 042
     Dates: start: 201701
  6. OPSUMIT [Suspect]
     Active Substance: MACITENTAN
     Dosage: 10 MG, QD
     Route: 048
  7. OXYGEN. [Concomitant]
     Active Substance: OXYGEN
     Dosage: 8 LITERS
  8. METFORMIN [Concomitant]
     Active Substance: METFORMIN HYDROCHLORIDE
  9. SYNTHROID [Concomitant]
     Active Substance: LEVOTHYROXINE SODIUM
  10. PRILOSEC [Concomitant]
     Active Substance: OMEPRAZOLE MAGNESIUM
  11. VELETRI [Suspect]
     Active Substance: EPOPROSTENOL
     Dosage: 10 NG/KG, PER MIN
     Route: 042
     Dates: start: 20170109
  12. VELETRI [Suspect]
     Active Substance: EPOPROSTENOL
     Dosage: 24 NG/KG, PER MIN
     Route: 042
  13. OPSUMIT [Suspect]
     Active Substance: MACITENTAN
     Indication: PULMONARY ARTERIAL HYPERTENSION
     Dosage: 10 MG, QD
     Route: 048
     Dates: start: 201612

REACTIONS (32)
  - Hospitalisation [Unknown]
  - Oxygen saturation decreased [Unknown]
  - Infusion site erythema [Unknown]
  - Pain in jaw [Not Recovered/Not Resolved]
  - Blood glucose increased [Unknown]
  - Catheter site pruritus [Unknown]
  - Catheter site extravasation [Unknown]
  - Unresponsive to stimuli [Unknown]
  - Catheter management [Recovered/Resolved]
  - Musculoskeletal pain [Unknown]
  - Interstitial lung disease [Unknown]
  - Skin burning sensation [Unknown]
  - Catheter site erythema [Recovered/Resolved]
  - Culture negative [Unknown]
  - Skin discolouration [Unknown]
  - Dyspnoea exertional [Unknown]
  - Rash generalised [Not Recovered/Not Resolved]
  - Fibrosis [Unknown]
  - Nausea [Not Recovered/Not Resolved]
  - Dizziness [Unknown]
  - Catheter site discharge [Recovered/Resolved]
  - Device malfunction [Unknown]
  - Product dose omission [Unknown]
  - Peripheral swelling [Recovered/Resolved]
  - Dermatitis [Not Recovered/Not Resolved]
  - Ventricular extrasystoles [Unknown]
  - Diarrhoea [Not Recovered/Not Resolved]
  - Emphysema [Unknown]
  - Blood pressure decreased [Unknown]
  - Palpitations [Recovered/Resolved]
  - Dyspnoea [Not Recovered/Not Resolved]
  - Scab [Recovered/Resolved]

NARRATIVE: CASE EVENT DATE: 201703
